FAERS Safety Report 9710125 (Version 1)
Quarter: 2013Q4

REPORT INFORMATION
  Report Type: Spontaneous
  Country: US (occurrence: US)
  Receive Date: 20131126
  Receipt Date: 20131126
  Transmission Date: 20140711
  Serious: Yes (Other)
  Sender: FDA-Public Use
  Company Number: PHEH2013US024261

PATIENT
  Sex: Female

DRUGS (7)
  1. SANDOSTATIN LAR [Suspect]
     Dosage: UNK UKN, UNK
  2. MULTIVITAMIN [Concomitant]
     Dosage: UNK UKN, QD
  3. CALCIUM [Concomitant]
     Dosage: UNK UKN, UNK
  4. TYLENOL [Concomitant]
     Dosage: UNK UKN, UNK
  5. ADVIL [Concomitant]
     Dosage: UNK UKN, UNK
  6. MOTRIN [Concomitant]
     Dosage: UNK UKN, UNK
  7. B12 [Concomitant]
     Dosage: UNK UKN, UNK

REACTIONS (6)
  - Tumour pain [Unknown]
  - Lung neoplasm [Unknown]
  - Skin lesion [Unknown]
  - Metastases to skin [Unknown]
  - Metastases to liver [Unknown]
  - Metastases to bone [Unknown]
